FAERS Safety Report 9227368 (Version 4)
Quarter: 2013Q2

REPORT INFORMATION
  Report Type: Spontaneous
  Country: US (occurrence: US)
  Receive Date: 20130412
  Receipt Date: 20130522
  Transmission Date: 20140414
  Serious: Yes (Hospitalization, Other)
  Sender: FDA-Public Use
  Company Number: US-JNJFOC-20130402370

PATIENT
  Age: 30 Year
  Sex: Female
  Weight: 68.04 kg

DRUGS (8)
  1. ZYTIGA [Suspect]
     Indication: ACCIDENTAL EXPOSURE TO PRODUCT
     Route: 065
     Dates: start: 201207
  2. TYLENOL [Suspect]
     Route: 065
  3. TYLENOL [Suspect]
     Indication: HEADACHE
     Dosage: PRN
     Route: 065
  4. FIORICET [Suspect]
     Indication: HEADACHE
     Dosage: PRN
     Route: 065
  5. TDAP VACCINE [Suspect]
     Indication: IMMUNISATION
     Route: 065
     Dates: start: 20120924
  6. INFLUENZA [Suspect]
     Indication: IMMUNISATION
     Route: 065
     Dates: start: 20120924
  7. OMEGA 3 [Concomitant]
     Indication: PRODUCT USED FOR UNKNOWN INDICATION
     Route: 065
  8. DOCOSAHEXAENOIC ACID [Concomitant]
     Route: 065

REACTIONS (4)
  - Premature delivery [Recovered/Resolved]
  - Premature rupture of membranes [Recovered/Resolved]
  - Exposure during pregnancy [Recovered/Resolved]
  - Accidental exposure to product [Recovered/Resolved]
